FAERS Safety Report 24271649 (Version 1)
Quarter: 2024Q3

REPORT INFORMATION
  Report Type: Spontaneous
  Country: GB (occurrence: GB)
  Receive Date: 20240902
  Receipt Date: 20240902
  Transmission Date: 20241016
  Serious: Yes (Other)
  Sender: JOHNSON AND JOHNSON
  Company Number: GB-MHRA-TPP22380780C8925588YC1724855458067

PATIENT
  Age: 78 Year
  Sex: Male
  Weight: 65 kg

DRUGS (13)
  1. RIVAROXABAN [Suspect]
     Active Substance: RIVAROXABAN
     Indication: Ill-defined disorder
     Dosage: UNK
     Route: 048
     Dates: start: 20240809
  2. RIVAROXABAN [Suspect]
     Active Substance: RIVAROXABAN
     Dosage: XARELTO 15 MG
     Route: 048
     Dates: start: 20240828
  3. APIXABAN [Concomitant]
     Active Substance: APIXABAN
     Indication: Ill-defined disorder
     Dosage: TAKE ONE TABLET TWICE A DAY
     Dates: start: 20240610
  4. BETAMETHASONE VALERATE [Concomitant]
     Active Substance: BETAMETHASONE VALERATE
     Indication: Ill-defined disorder
     Dosage: MODERATE POTENCY STEROID CREAM -  APPLY TWICE A DAY AS DIRECTED, AVOID FACE AND NECK
     Dates: start: 20240827
  5. CETIRIZINE [Concomitant]
     Active Substance: CETIRIZINE HYDROCHLORIDE
     Indication: Ill-defined disorder
     Dosage: TAKE ONE TABLET ONCE A DAY
     Dates: start: 20240822
  6. ACETIC ACID [Concomitant]
     Active Substance: ACETIC ACID
     Indication: Ill-defined disorder
     Dosage: USE ONE SPRAY INTO THE AFFECTED EAR(S) THREE TI...
     Dates: start: 20240827
  7. LANSOPRAZOLE [Concomitant]
     Active Substance: LANSOPRAZOLE
     Indication: Ill-defined disorder
     Dosage: TAKE ONE CAPSULE ONCE DAILY
     Dates: start: 20240827
  8. AMLODIPINE [Concomitant]
     Active Substance: AMLODIPINE BESYLATE
     Indication: Ill-defined disorder
     Dosage: ONE TO BE TAKEN EACH DAY
     Dates: start: 20240417
  9. ASPIRIN [Concomitant]
     Active Substance: ASPIRIN
     Indication: Ill-defined disorder
     Dosage: 2D
     Dates: start: 20240417, end: 20240610
  10. ATORVASTATIN [Concomitant]
     Active Substance: ATORVASTATIN
     Indication: Ill-defined disorder
     Dosage: ONE TO BE TAKEN EACH DAY
     Dates: start: 20240417
  11. CALCI D [Concomitant]
     Indication: Ill-defined disorder
     Dosage: ONE TO BE TAKEN ONCE A DAY
     Dates: start: 20240417
  12. FLECAINIDE ACETATE [Concomitant]
     Active Substance: FLECAINIDE ACETATE
     Indication: Ill-defined disorder
     Dosage: ONE TWICE A DAY
     Dates: start: 20240417
  13. TAMSULOSIN HYDROCHLORIDE [Concomitant]
     Active Substance: TAMSULOSIN HYDROCHLORIDE
     Indication: Ill-defined disorder
     Dosage: ONE TO BE TAKEN EACH DAY
     Dates: start: 20240417

REACTIONS (1)
  - Rash [Recovering/Resolving]

NARRATIVE: CASE EVENT DATE: 20240813
